FAERS Safety Report 25077909 (Version 1)
Quarter: 2025Q1

REPORT INFORMATION
  Report Type: Report from Study
  Country: ZA (occurrence: ZA)
  Receive Date: 20250314
  Receipt Date: 20250314
  Transmission Date: 20250409
  Serious: Yes (Other)
  Sender: ROCHE
  Company Number: ZA-ROCHE-10000224738

PATIENT
  Sex: Female

DRUGS (1)
  1. OCREVUS [Suspect]
     Active Substance: OCRELIZUMAB
     Indication: Relapsing-remitting multiple sclerosis
     Dosage: THEREAFTER 600MG EVERY 6 MONTHS
     Route: 042

REACTIONS (4)
  - Nasal septum deviation [Unknown]
  - Cerebral atrophy [Unknown]
  - Cervical spinal stenosis [Unknown]
  - Intervertebral disc degeneration [Unknown]
